FAERS Safety Report 23217737 (Version 2)
Quarter: 2023Q4

REPORT INFORMATION
  Report Type: Report from Study
  Country: US (occurrence: US)
  Receive Date: 20231122
  Receipt Date: 20231215
  Transmission Date: 20240110
  Serious: Yes (Hospitalization)
  Sender: FDA-Public Use
  Company Number: US-BAYER-2023A151113

PATIENT
  Age: 65 Year
  Sex: Female

DRUGS (2)
  1. STIVARGA [Suspect]
     Active Substance: REGORAFENIB
     Indication: Colon cancer
     Dosage: 40 MG, QD
     Route: 048
     Dates: start: 20231015, end: 20231016
  2. STIVARGA [Suspect]
     Active Substance: REGORAFENIB
     Indication: Colon cancer
     Dosage: UNK

REACTIONS (5)
  - Blood creatine increased [Recovering/Resolving]
  - Blood pressure increased [Recovered/Resolved]
  - Diarrhoea [Recovered/Resolved]
  - Off label use [None]
  - Hepatic enzyme increased [None]

NARRATIVE: CASE EVENT DATE: 20231015
